FAERS Safety Report 17489336 (Version 1)
Quarter: 2020Q1

REPORT INFORMATION
  Report Type: Spontaneous
  Country: US (occurrence: US)
  Receive Date: 20200220
  Receipt Date: 20200220
  Transmission Date: 20200409
  Serious: Yes (Hospitalization)
  Sender: FDA-Public Use
  Company Number: None

PATIENT
  Sex: Male
  Weight: 79.4 kg

DRUGS (3)
  1. MERCAPTOPURINE(755) [Suspect]
     Active Substance: MERCAPTOPURINE
     Dosage: ?          OTHER FREQUENCY:525MG/M2/WEEK;?
     Dates: end: 20200206
  2. VINCRISTINE SULFATE. [Suspect]
     Active Substance: VINCRISTINE SULFATE
     Dates: end: 20200128
  3. METHOTREXATE. [Suspect]
     Active Substance: METHOTREXATE
     Dates: end: 20200204

REACTIONS (8)
  - Productive cough [None]
  - Dyspnoea [None]
  - Pain in extremity [None]
  - Transaminases increased [None]
  - Headache [None]
  - Neutrophil count decreased [None]
  - Chest pain [None]
  - Corona virus infection [None]

NARRATIVE: CASE EVENT DATE: 20200207
